FAERS Safety Report 9940986 (Version 6)
Quarter: 2014Q4

REPORT INFORMATION
  Report Type: Spontaneous
  Country: FR (occurrence: FR)
  Receive Date: 20140303
  Receipt Date: 20141113
  Transmission Date: 20150529
  Serious: Yes (Hospitalization, Other)
  Sender: FDA-Public Use
  Company Number: FR-TEVA-447008ISR

PATIENT
  Sex: Female

DRUGS (4)
  1. EFFEXOR [Concomitant]
     Active Substance: VENLAFAXINE HYDROCHLORIDE
     Indication: DEPRESSION
  2. FLUOXETINE [Concomitant]
     Active Substance: FLUOXETINE\FLUOXETINE HYDROCHLORIDE
     Route: 048
     Dates: start: 201307
  3. LYSANXIA [Concomitant]
     Active Substance: PRAZEPAM
     Dosage: 30 MILLIGRAM DAILY;
     Route: 048
     Dates: start: 201307
  4. COPAXONE [Suspect]
     Active Substance: GLATIRAMER ACETATE
     Route: 058
     Dates: start: 20130904, end: 201406

REACTIONS (9)
  - Weight decreased [Unknown]
  - Hypotension [Recovered/Resolved]
  - Decreased appetite [Unknown]
  - Injury [Unknown]
  - Malaise [Unknown]
  - Syncope [Recovered/Resolved]
  - Depression [Unknown]
  - Vascular fragility [Unknown]
  - Nausea [Unknown]

NARRATIVE: CASE EVENT DATE: 2013
